FAERS Safety Report 16986587 (Version 1)
Quarter: 2019Q4

REPORT INFORMATION
  Report Type: Spontaneous
  Country: US (occurrence: US)
  Receive Date: 20191101
  Receipt Date: 20191101
  Transmission Date: 20200122
  Serious: No
  Sender: FDA-Public Use
  Company Number: US-TEVA-2019-US-1132676

PATIENT
  Sex: Female

DRUGS (1)
  1. AYGESTIN [Suspect]
     Active Substance: NORETHINDRONE ACETATE
     Route: 065
     Dates: start: 2019

REACTIONS (1)
  - Hot flush [Unknown]
